FAERS Safety Report 6792580-6 (Version None)
Quarter: 2010Q2

REPORT INFORMATION
  Report Type: 
  Country: None (occurrence: None)
  Receive Date: 20100624
  Receipt Date: 20100616
  Transmission Date: 20101027
  Serious: Yes (Other)
  Sender: FDA-Public Use
  Company Number: JP-AMGEN-US407865

PATIENT
  Sex: Female
  Weight: 48.1 kg

DRUGS (3)
  1. ETANERCEPT [Suspect]
     Indication: RHEUMATOID ARTHRITIS
     Route: 058
     Dates: start: 20090413, end: 20100408
  2. ALFACALCIDOL [Concomitant]
     Indication: OSTEOPOROSIS
     Route: 048
     Dates: start: 20100217
  3. CALCIUM CARBONATE [Concomitant]

REACTIONS (2)
  - ABORTION COMPLETE [None]
  - DRUG EXPOSURE DURING PREGNANCY [None]
